FAERS Safety Report 25341958 (Version 1)
Quarter: 2025Q2

REPORT INFORMATION
  Report Type: Spontaneous
  Country: FR (occurrence: FR)
  Receive Date: 20250521
  Receipt Date: 20250521
  Transmission Date: 20250716
  Serious: Yes (Hospitalization)
  Sender: NORDIC PHARMA
  Company Number: None

PATIENT
  Sex: Female
  Weight: 61.4 kg

DRUGS (14)
  1. METHOTREXATE [Suspect]
     Active Substance: METHOTREXATE
     Indication: Systemic lupus erythematosus
  2. METHOTREXATE [Suspect]
     Active Substance: METHOTREXATE
     Indication: Systemic lupus erythematosus
     Route: 058
     Dates: start: 202411, end: 20250408
  3. folic acid (SPECIAFOLDINE) [Concomitant]
     Dosage: FOLIC ACID (SPECIAFOLDINE) 5 MG 2 TABLETS ON THURSDAYS
  4. warfarin (COUMADINE) [Concomitant]
  5. BISOPROLOL [Concomitant]
     Active Substance: BISOPROLOL
     Dosage: BISOPROLOL 3.75 MG MORNINGS AND EVENINGS
  6. FUROSEMIDE [Concomitant]
     Active Substance: FUROSEMIDE
     Dosage: FUROSEMIDE 40 MG MORNINGS
  7. DAPAGLIFLOZIN [Concomitant]
     Active Substance: DAPAGLIFLOZIN
     Dosage: DAPAGLIFOZINE 10 MG MORNINGS,
  8. AMIODARONE [Concomitant]
     Active Substance: AMIODARONE
     Dosage: AMIODARONE 200 MG MORNINGS
  9. PRAVASTATIN [Concomitant]
     Active Substance: PRAVASTATIN
     Dosage: PRAVASTATIN 40 MG EVENINGS
  10. PREDNISONE [Concomitant]
     Active Substance: PREDNISONE
     Dosage: PREDNISONE 5 MG MORNINGS
  11. risedronate 35 mg 1 cp/week [Concomitant]
     Dosage: RISEDRONATE 35 MG 1 CP/WEEK
  12. OXYBUTYNIN [Concomitant]
     Active Substance: OXYBUTYNIN
     Dosage: OXYBUTYNIN 5 MG MIDDAYS
  13. OXAZEPAM [Concomitant]
     Active Substance: OXAZEPAM
     Dosage: OXAZEPAM 25 MG EVENINGS
  14. ZOPICLONE [Concomitant]
     Active Substance: ZOPICLONE
     Dosage: ZOPICLONE 3.75 MG BEDTIME

REACTIONS (4)
  - Overdose [Recovered/Resolved]
  - Mucosal inflammation [Recovered/Resolved]
  - Pancytopenia [Recovering/Resolving]
  - Product use in unapproved indication [Unknown]

NARRATIVE: CASE EVENT DATE: 20250410
